FAERS Safety Report 14465691 (Version 2)
Quarter: 2018Q1

REPORT INFORMATION
  Report Type: Report from Study
  Country: None (occurrence: US)
  Receive Date: 20180131
  Receipt Date: 20180212
  Transmission Date: 20180509
  Serious: Yes (Hospitalization, Other)
  Sender: FDA-Public Use
  Company Number: US-ABBVIE-18K-163-2235679-00

PATIENT
  Age: 77 Year
  Sex: Female
  Weight: 62.2 kg

DRUGS (2)
  1. HUMIRA [Suspect]
     Active Substance: ADALIMUMAB
     Indication: CROHN^S DISEASE
     Route: 058
     Dates: start: 201708
  2. DILTIAZEM. [Concomitant]
     Active Substance: DILTIAZEM
     Indication: ATRIAL FIBRILLATION

REACTIONS (4)
  - Alopecia [Not Recovered/Not Resolved]
  - Intestinal obstruction [Recovered/Resolved]
  - Nausea [Recovered/Resolved]
  - Abdominal adhesions [Unknown]

NARRATIVE: CASE EVENT DATE: 20171001
